FAERS Safety Report 5821823-8 (Version None)
Quarter: 2008Q3

REPORT INFORMATION
  Report Type: 
  Country: None (occurrence: None)
  Receive Date: 20080724
  Receipt Date: 20080708
  Transmission Date: 20090109
  Serious: No
  Sender: FDA-Public Use
  Company Number: US-BOEHRINGER INGELHEIM GMBH, GERMANY-2008-BP-10682BP

PATIENT
  Sex: Female

DRUGS (5)
  1. MICARDIS [Suspect]
     Indication: BLOOD PRESSURE INCREASED
     Route: 048
     Dates: start: 20030101, end: 20080601
  2. PREMPRO [Concomitant]
     Indication: MENOPAUSE
  3. ZYRTEC [Concomitant]
     Indication: HYPERSENSITIVITY
  4. MOBIC [Concomitant]
     Indication: ARTHRITIS
  5. NEXIUM [Concomitant]
     Indication: GASTROINTESTINAL DISORDER

REACTIONS (3)
  - OEDEMA MOUTH [None]
  - OEDEMA MUCOSAL [None]
  - ORAL PAIN [None]
